FAERS Safety Report 4500423-6 (Version None)
Quarter: 2004Q3

REPORT INFORMATION
  Report Type: 
  Country: None (occurrence: None)
  Receive Date: 20040928
  Receipt Date: 20040728
  Transmission Date: 20050211
  Serious: No
  Sender: FDA-Public Use
  Company Number: 04P-163-0268470-00

PATIENT
  Age: 25 Year
  Sex: Female

DRUGS (7)
  1. HUMIRA [Suspect]
     Indication: RHEUMATOID ARTHRITIS
     Dosage: 40 MG, 1 IN 2 WK, SUBCUTANEOUS
     Route: 058
     Dates: start: 20040419
  2. LEXAPRO [Concomitant]
  3. ALPRAZOLAM [Concomitant]
  4. ROFECOXIB [Concomitant]
  5. CALCIUM [Concomitant]
  6. TRAZODONE HCL [Concomitant]
  7. PREDNISONE [Concomitant]

REACTIONS (1)
  - INJECTION SITE PAIN [None]
